FAERS Safety Report 16763709 (Version 4)
Quarter: 2020Q3

REPORT INFORMATION
  Report Type: Spontaneous
  Country: US (occurrence: US)
  Receive Date: 20190902
  Receipt Date: 20200902
  Transmission Date: 20201102
  Serious: Yes (Other)
  Sender: FDA-Public Use
  Company Number: US-PFIZER INC-2019109271

PATIENT
  Age: 70 Year
  Sex: Female
  Weight: 102.5 kg

DRUGS (3)
  1. LYRICA [Suspect]
     Active Substance: PREGABALIN
     Dosage: 400 MG, DAILY (100MG AM AND AT NOON, 200MG AT BEDTIME; 1CAP IN AM, 1CAP WITH LUNCH, 2 CAP NIGHTLY)
     Route: 048
  2. LYRICA [Suspect]
     Active Substance: PREGABALIN
     Dosage: 100 MG, 4X/DAY
     Dates: start: 201611
  3. LYRICA [Suspect]
     Active Substance: PREGABALIN
     Indication: NEUROPATHY PERIPHERAL
     Dosage: 100 MG, AS NEEDED (1 IN AM AND AT LUNCH 2HS/3HS)

REACTIONS (12)
  - Intervertebral disc degeneration [Unknown]
  - Arthritis [Unknown]
  - Hypoaesthesia [Unknown]
  - Muscle spasms [Unknown]
  - Arthralgia [Unknown]
  - Chest discomfort [Unknown]
  - Gait inability [Recovered/Resolved]
  - Blood glucose decreased [Unknown]
  - Peripheral swelling [Recovered/Resolved]
  - Pain in extremity [Recovered/Resolved]
  - Sensitivity to weather change [Unknown]
  - Back pain [Unknown]

NARRATIVE: CASE EVENT DATE: 201912
